FAERS Safety Report 25023586 (Version 2)
Quarter: 2025Q2

REPORT INFORMATION
  Report Type: Report from Study
  Country: CA (occurrence: CA)
  Receive Date: 20250228
  Receipt Date: 20250523
  Transmission Date: 20250717
  Serious: Yes (Other)
  Sender: TAKEDA
  Company Number: CA-TAKEDA-2024TUS063461

PATIENT
  Age: 77 Year
  Sex: Male

DRUGS (13)
  1. VEDOLIZUMAB [Suspect]
     Active Substance: VEDOLIZUMAB
     Indication: Crohn^s disease
  2. VEDOLIZUMAB [Suspect]
     Active Substance: VEDOLIZUMAB
  3. VEDOLIZUMAB [Suspect]
     Active Substance: VEDOLIZUMAB
  4. VEDOLIZUMAB [Suspect]
     Active Substance: VEDOLIZUMAB
  5. ENTOCORT [Concomitant]
     Active Substance: BUDESONIDE
  6. METHADONE [Concomitant]
     Active Substance: METHADONE HYDROCHLORIDE
  7. HYDROMORPHONE [Concomitant]
     Active Substance: HYDROMORPHONE
  8. POLYETHYLENE GLYCOL 3350 [Concomitant]
     Active Substance: POLYETHYLENE GLYCOL 3350
  9. APIXABAN [Concomitant]
     Active Substance: APIXABAN
  10. PANTOPRAZOLE [Concomitant]
     Active Substance: PANTOPRAZOLE
  11. METOPROLOL [Concomitant]
     Active Substance: METOPROLOL
  12. FENTANYL [Concomitant]
     Active Substance: FENTANYL
     Route: 061
  13. PREDNISONE [Concomitant]
     Active Substance: PREDNISONE

REACTIONS (4)
  - Frequent bowel movements [Not Recovered/Not Resolved]
  - Defaecation urgency [Not Recovered/Not Resolved]
  - Bowel movement irregularity [Unknown]
  - Gastrointestinal infection [Unknown]

NARRATIVE: CASE EVENT DATE: 20240624
